FAERS Safety Report 22159170 (Version 1)
Quarter: 2023Q1

REPORT INFORMATION
  Report Type: Spontaneous
  Country: US (occurrence: US)
  Receive Date: 20230331
  Receipt Date: 20230331
  Transmission Date: 20230418
  Serious: No
  Sender: FDA-Public Use
  Company Number: US-Accord-262863

PATIENT

DRUGS (2)
  1. CARBOPLATIN [Suspect]
     Active Substance: CARBOPLATIN
     Indication: Ovarian cancer
     Dates: end: 20210902
  2. ABRAXANE [Suspect]
     Active Substance: PACLITAXEL
     Indication: Ovarian cancer
     Dates: end: 20210902

REACTIONS (1)
  - Disease progression [Unknown]
